FAERS Safety Report 4611938-4 (Version None)
Quarter: 2005Q2

REPORT INFORMATION
  Report Type: 
  Country: None (occurrence: None)
  Receive Date: 20050308
  Receipt Date: 20050114
  Transmission Date: 20051028
  Serious: Yes (Hospitalization)
  Sender: FDA-Public Use
  Company Number: 2005UW00710

PATIENT
  Age: 64 Year
  Sex: Female
  Weight: 90.7194 kg

DRUGS (6)
  1. CRESTOR [Suspect]
     Dosage: 10 MG PO
  2. ACCUPRIL [Concomitant]
  3. NORVASC [Concomitant]
  4. TYLENOL (CAPLET) [Concomitant]
  5. PREDNISONE [Concomitant]
  6. SULFASALAZINE [Concomitant]

REACTIONS (2)
  - HEPATIC ENZYME INCREASED [None]
  - PANCREATITIS [None]
